FAERS Safety Report 8167264-2 (Version None)
Quarter: 2012Q1

REPORT INFORMATION
  Report Type: 
  Country: None (occurrence: None)
  Receive Date: 20120227
  Receipt Date: 20120223
  Transmission Date: 20120608
  Serious: Yes (Other)
  Sender: FDA-Public Use
  Company Number: US-PFIZER INC-2012048686

PATIENT
  Sex: Female
  Weight: 87 kg

DRUGS (1)
  1. ACCURETIC [Suspect]
     Indication: HYPERTENSION
     Dosage: 20/25 MG, 1X/DAY
     Route: 048

REACTIONS (2)
  - OVARIAN CANCER [None]
  - NAUSEA [None]
